FAERS Safety Report 12233093 (Version 1)
Quarter: 2016Q2

REPORT INFORMATION
  Report Type: Report from Study
  Country: US (occurrence: US)
  Receive Date: 20160403
  Receipt Date: 20160403
  Transmission Date: 20160815
  Serious: Yes (Other)
  Sender: FDA-Public Use
  Company Number: US-BIOGEN-2016BI00212445

PATIENT
  Sex: Female

DRUGS (1)
  1. TECFIDERA [Suspect]
     Active Substance: DIMETHYL FUMARATE
     Indication: MULTIPLE SCLEROSIS
     Dosage: STARTING DOSE
     Route: 048
     Dates: start: 20160226

REACTIONS (7)
  - Alopecia [Unknown]
  - Prescribed underdose [Not Recovered/Not Resolved]
  - Nausea [Unknown]
  - Depression [Unknown]
  - Mobility decreased [Unknown]
  - Suicidal ideation [Unknown]
  - Abasia [Unknown]
